FAERS Safety Report 18046415 (Version 2)
Quarter: 2021Q1

REPORT INFORMATION
  Report Type: Spontaneous
  Country: US (occurrence: US)
  Receive Date: 20200720
  Receipt Date: 20210311
  Transmission Date: 20210419
  Serious: No
  Sender: FDA-Public Use
  Company Number: US-PFIZER INC-2020275834

PATIENT
  Age: 55 Year
  Sex: Female

DRUGS (1)
  1. EUCRISA [Suspect]
     Active Substance: CRISABOROLE
     Dosage: UNK, 3X/DAY

REACTIONS (3)
  - Off label use [Unknown]
  - Limb discomfort [Unknown]
  - Blister [Unknown]
